FAERS Safety Report 4278076-4 (Version None)
Quarter: 2004Q1

REPORT INFORMATION
  Report Type: 
  Country: None (occurrence: None)
  Receive Date: 20040121
  Receipt Date: 20040119
  Transmission Date: 20041129
  Serious: Yes (Other)
  Sender: FDA-Public Use
  Company Number: 22803

PATIENT
  Age: 45 Year
  Sex: Female

DRUGS (4)
  1. NUELIN (THEOPHYLLINE) (THEOPHYLLINE) [Suspect]
     Indication: ASTHMA
     Dosage: 500 MG (250 MG, 2 IN 1 DAY (S) ) ORAL
     Route: 048
  2. ACTONEL [Suspect]
     Indication: OSTEOPOROSIS
     Dosage: (35 MGK 1 IN 1 WEEK (S)), ORAL
     Route: 048
     Dates: start: 20031028, end: 20031126
  3. SINGULAIR [Concomitant]
  4. LOSEC I.V. [Concomitant]

REACTIONS (2)
  - DRUG INTERACTION [None]
  - DRUG LEVEL INCREASED [None]
